FAERS Safety Report 9362326 (Version 1)
Quarter: 2013Q2

REPORT INFORMATION
  Report Type: Spontaneous
  Country: US (occurrence: US)
  Receive Date: 20130622
  Receipt Date: 20130622
  Transmission Date: 20140414
  Serious: No
  Sender: FDA-Public Use
  Company Number: US-US-EMD SERONO, INC.-7171157

PATIENT
  Sex: Female
  Weight: 68 kg

DRUGS (2)
  1. REBIF [Suspect]
     Indication: MULTIPLE SCLEROSIS
     Route: 058
     Dates: start: 20091230
  2. IMITREX [Concomitant]
     Indication: MIGRAINE

REACTIONS (9)
  - Feeling abnormal [Recovering/Resolving]
  - Pressure of speech [Recovering/Resolving]
  - Thinking abnormal [Unknown]
  - Dizziness [Not Recovered/Not Resolved]
  - Irritability [Not Recovered/Not Resolved]
  - Poor quality sleep [Not Recovered/Not Resolved]
  - Chest discomfort [Unknown]
  - Injection site erythema [Not Recovered/Not Resolved]
  - Injection site bruising [Unknown]
